FAERS Safety Report 20867908 (Version 1)
Quarter: 2022Q2

REPORT INFORMATION
  Report Type: Spontaneous
  Country: CO (occurrence: CO)
  Receive Date: 20220524
  Receipt Date: 20220524
  Transmission Date: 20220720
  Serious: Yes (Disabling, Other)
  Sender: FDA-Public Use
  Company Number: CO-PFIZER INC-202200735842

PATIENT
  Age: 48 Year
  Sex: Female

DRUGS (1)
  1. XELJANZ XR [Suspect]
     Active Substance: TOFACITINIB CITRATE
     Indication: Rheumatoid arthritis
     Dosage: 11 MG, UNSPECIFIED FRECUENCY
     Route: 048
     Dates: start: 2018

REACTIONS (3)
  - Wheelchair user [Not Recovered/Not Resolved]
  - Gait disturbance [Unknown]
  - Limb injury [Unknown]

NARRATIVE: CASE EVENT DATE: 20210101
